FAERS Safety Report 10201635 (Version 1)
Quarter: 2014Q2

REPORT INFORMATION
  Report Type: Spontaneous
  Country: IT (occurrence: IT)
  Receive Date: 20140528
  Receipt Date: 20140528
  Transmission Date: 20141212
  Serious: Yes (Hospitalization)
  Sender: FDA-Public Use
  Company Number: PHHY2014IT060817

PATIENT
  Age: 34 Year
  Sex: Male

DRUGS (1)
  1. VERAPAMIL [Suspect]
     Dates: start: 20140101, end: 20140418

REACTIONS (2)
  - Headache [Recovering/Resolving]
  - Vomiting [Recovering/Resolving]
